FAERS Safety Report 11910694 (Version 2)
Quarter: 2016Q1

REPORT INFORMATION
  Report Type: Spontaneous
  Country: HR (occurrence: HR)
  Receive Date: 20160112
  Receipt Date: 20160113
  Transmission Date: 20160526
  Serious: Yes (Other)
  Sender: FDA-Public Use
  Company Number: HR-WATSON-2015-29039

PATIENT
  Age: 53 Year
  Sex: Male

DRUGS (6)
  1. FLUDARABINE [Suspect]
     Active Substance: FLUDARABINE PHOSPHATE
     Indication: B-CELL LYMPHOMA
     Dosage: UNK UNK, CYCLICAL(6 CYCLES- 2 LINE THERAPYFEB/2006- 3 LINE THERAPY)
     Route: 065
     Dates: start: 200506, end: 200610
  2. RITUXIMAB [Suspect]
     Active Substance: RITUXIMAB
     Indication: B-CELL LYMPHOMA
     Dosage: 375 MG/M2, CYCLICAL-EVERY 3 MONTHS (MAINTENANCE THERAPY FOR 2 YEARS)
     Route: 042
  3. RITUXIMAB [Suspect]
     Active Substance: RITUXIMAB
     Dosage: UNK UNK, CYCLICAL(3 CYCLES- 2 LINE THERAPYFEB/2006- 3 LINE THERAPY)
     Route: 042
     Dates: start: 200506, end: 200610
  4. DEXAMETHASONE (UNKNOWN) [Suspect]
     Active Substance: DEXAMETHASONE
     Indication: B-CELL LYMPHOMA
     Dosage: UNK UNK, CYCLICAL (6 CYCLES- 2 LINE THERAPY)
     Route: 065
     Dates: start: 200506, end: 200511
  5. CYCLOPHOSPHAMIDE (UNKNOWN) [Suspect]
     Active Substance: CYCLOPHOSPHAMIDE
     Indication: B-CELL LYMPHOMA
     Dosage: UNK UNK, CYCLICAL (FEB/2006- 3 LINE THERAPY)
     Route: 065
     Dates: start: 200602, end: 200610
  6. MITOXANTRONE [Suspect]
     Active Substance: MITOXANTRONE HYDROCHLORIDE
     Indication: B-CELL LYMPHOMA
     Dosage: UNK UNK, CYCLICAL (6 CYCLES- 2 LINE THERAPY)
     Route: 065
     Dates: start: 200506, end: 200511

REACTIONS (1)
  - Febrile neutropenia [Recovered/Resolved]

NARRATIVE: CASE EVENT DATE: 200506
